FAERS Safety Report 4977589-7 (Version None)
Quarter: 2006Q2

REPORT INFORMATION
  Report Type: 
  Country: None (occurrence: None)
  Receive Date: 20060414
  Receipt Date: 20060403
  Transmission Date: 20061013
  Serious: Yes (Hospitalization)
  Sender: FDA-Public Use
  Company Number: 2006-140955-NL

PATIENT
  Age: 75 Year
  Sex: Male

DRUGS (6)
  1. MIRTAZAPINE [Suspect]
     Indication: DEPRESSION
     Dosage: 30 MG ORAL
     Route: 048
     Dates: end: 20060209
  2. IRBESARTAN AND HYDROCHLOROTHIAZIDE [Suspect]
     Indication: ESSENTIAL HYPERTENSION
     Dosage: DF ORAL
     Route: 048
     Dates: end: 20060209
  3. TERBUTALINE SULFATE [Concomitant]
  4. ACETYLSALICYLIC ACID SRT [Concomitant]
  5. ESOMEPRAZOLE [Concomitant]
  6. DICLOFENAC POTASSIUM [Concomitant]

REACTIONS (4)
  - BALANCE DISORDER [None]
  - HYPONATRAEMIA [None]
  - INAPPROPRIATE ANTIDIURETIC HORMONE SECRETION [None]
  - RENAL IMPAIRMENT [None]
